FAERS Safety Report 8223982-9 (Version None)
Quarter: 2012Q1

REPORT INFORMATION
  Report Type: 
  Country: None (occurrence: None)
  Receive Date: 20120320
  Receipt Date: 20120320
  Transmission Date: 20120608
  Serious: Yes (Hospitalization)
  Sender: FDA-Public Use
  Company Number: None

PATIENT
  Sex: Female
  Weight: 75 kg

DRUGS (17)
  1. DECADRON [Concomitant]
  2. PACLITAXEL [Suspect]
     Dosage: 322 MG
     Dates: end: 20111012
  3. ACTONEL [Concomitant]
  4. ZOLOFT [Concomitant]
  5. IBUPROFEN [Concomitant]
  6. MIACALCIN [Concomitant]
  7. ZOFRAN [Concomitant]
  8. CARBOPLATIN [Suspect]
     Dosage: 525 MG
     Dates: end: 20111012
  9. MULTIVITAMIN [Concomitant]
  10. FLONASE [Concomitant]
  11. ADVAIR DISKUS 100/50 [Concomitant]
  12. CLARITIN [Concomitant]
  13. COMPAZINE [Concomitant]
  14. SINGULAIR [Concomitant]
  15. Z BEC (ZINC, B-COMPLEX, VIT E + C) [Concomitant]
  16. PROAIR HFA [Concomitant]
  17. SIMVASTATIN [Concomitant]

REACTIONS (1)
  - FEBRILE NEUTROPENIA [None]
